FAERS Safety Report 25649413 (Version 1)
Quarter: 2025Q3

REPORT INFORMATION
  Report Type: Spontaneous
  Country: US (occurrence: None)
  Receive Date: 20250805
  Receipt Date: 20250805
  Transmission Date: 20251021
  Serious: Yes (Other)
  Sender: FDA-CTU
  Company Number: None

PATIENT
  Age: 81 Year
  Sex: Female
  Weight: 104.3 kg

DRUGS (2)
  1. CAPECITABINE [Suspect]
     Active Substance: CAPECITABINE
     Indication: Breast cancer
     Route: 048
  2. CAPECITABINE [Suspect]
     Active Substance: CAPECITABINE
     Indication: Hepatobiliary neoplasm

REACTIONS (6)
  - Erythema [None]
  - Blister [None]
  - Skin exfoliation [None]
  - Skin laxity [None]
  - Increased tendency to bruise [None]
  - Skin haemorrhage [None]

NARRATIVE: CASE EVENT DATE: 20250805
